FAERS Safety Report 5336762-9 (Version None)
Quarter: 2007Q2

REPORT INFORMATION
  Report Type: 
  Country: None (occurrence: None)
  Receive Date: 20070529
  Receipt Date: 20070515
  Transmission Date: 20071010
  Serious: Yes (Other)
  Sender: FDA-Public Use
  Company Number: PHBS2007GR08287

PATIENT
  Age: 58 Year
  Sex: Male

DRUGS (1)
  1. ELIDEL [Suspect]
     Route: 061
     Dates: start: 20060801, end: 20061201

REACTIONS (1)
  - TINEA INFECTION [None]
